FAERS Safety Report 11791751 (Version 6)
Quarter: 2016Q1

REPORT INFORMATION
  Report Type: Spontaneous
  Country: JP (occurrence: JP)
  Receive Date: 20151201
  Receipt Date: 20160313
  Transmission Date: 20160525
  Serious: Yes (Death, Other)
  Sender: FDA-Public Use
  Company Number: JP-B.I. PHARMACEUTICALS,INC./RIDGEFIELD-2015-BI-66802NB

PATIENT
  Age: 65 Year
  Sex: Male
  Weight: 61.2 kg

DRUGS (1)
  1. PRAZAXA [Suspect]
     Active Substance: DABIGATRAN ETEXILATE MESYLATE
     Indication: ATRIAL FIBRILLATION
     Dosage: 220 MG
     Route: 048
     Dates: start: 20140916, end: 20150316

REACTIONS (10)
  - Atrial fibrillation [Fatal]
  - Anal incontinence [Not Recovered/Not Resolved]
  - Drug ineffective [Unknown]
  - Oxygen saturation decreased [Unknown]
  - Acute left ventricular failure [Fatal]
  - Wheezing [Not Recovered/Not Resolved]
  - Tachycardia [Fatal]
  - Pneumonia aspiration [Fatal]
  - Cerebral infarction [Fatal]
  - Blood pressure decreased [Not Recovered/Not Resolved]

NARRATIVE: CASE EVENT DATE: 20150316
